FAERS Safety Report 15469675 (Version 1)
Quarter: 2018Q4

REPORT INFORMATION
  Report Type: Spontaneous
  Country: UY (occurrence: UY)
  Receive Date: 20181005
  Receipt Date: 20181005
  Transmission Date: 20190205
  Serious: Yes (Hospitalization, Other)
  Sender: FDA-Public Use
  Company Number: UY-IMPAX LABORATORIES, INC-2018-IPXL-03228

PATIENT
  Age: 8 Year
  Sex: Male

DRUGS (4)
  1. L-CARNITINE [Concomitant]
     Active Substance: LEVOCARNITINE
     Indication: PRODUCT USED FOR UNKNOWN INDICATION
     Dosage: 2 G, DAILY
     Route: 048
  2. DIVALPROEX SODIUM ER [Interacting]
     Active Substance: DIVALPROEX SODIUM
     Indication: EPILEPSY
     Dosage: 375 MG EVERY 8 HOURS
     Route: 065
  3. LAMOTRIGINE ODT [Suspect]
     Active Substance: LAMOTRIGINE
     Indication: EPILEPSY
     Dosage: 25 MG, DAILY
     Route: 065
  4. LAMOTRIGINE ODT [Interacting]
     Active Substance: LAMOTRIGINE
     Dosage: 50 MG, DAILY
     Route: 065

REACTIONS (6)
  - Staphylococcal skin infection [Recovered/Resolved]
  - Drug effect decreased [Unknown]
  - Septic shock [Recovered/Resolved]
  - Respiratory failure [Recovered/Resolved]
  - Stevens-Johnson syndrome [Recovered/Resolved]
  - Labelled drug-drug interaction medication error [Recovered/Resolved]
